FAERS Safety Report 11374639 (Version 2)
Quarter: 2015Q4

REPORT INFORMATION
  Report Type: Report from Study
  Country: US (occurrence: US)
  Receive Date: 20150813
  Receipt Date: 20151013
  Transmission Date: 20160304
  Serious: Yes (Other)
  Sender: FDA-Public Use
  Company Number: US-AMGEN-USASP2015082260

PATIENT
  Age: 43 Year
  Sex: Male

DRUGS (2)
  1. ENBREL [Suspect]
     Active Substance: ETANERCEPT
     Indication: RHEUMATOID LUNG
     Dosage: UNK
     Route: 065
     Dates: start: 201403
  2. ENBREL [Suspect]
     Active Substance: ETANERCEPT
     Indication: RHEUMATOID ARTHRITIS

REACTIONS (8)
  - Diarrhoea [Unknown]
  - Diabetes mellitus [Unknown]
  - Abdominal pain upper [Not Recovered/Not Resolved]
  - Injection site mass [Unknown]
  - Dizziness [Unknown]
  - Injection site discolouration [Unknown]
  - Hyperhidrosis [Unknown]
  - Weight increased [Unknown]

NARRATIVE: CASE EVENT DATE: 201403
